FAERS Safety Report 17415987 (Version 1)
Quarter: 2020Q1

REPORT INFORMATION
  Report Type: Report from Study
  Country: US (occurrence: US)
  Receive Date: 20200213
  Receipt Date: 20200213
  Transmission Date: 20200409
  Serious: Yes (Hospitalization)
  Sender: FDA-Public Use
  Company Number: US-ACTELION-A-US2016-145473

PATIENT
  Sex: Female
  Weight: 65.76 kg

DRUGS (7)
  1. UPTRAVI [Suspect]
     Active Substance: SELEXIPAG
     Indication: PULMONARY ARTERIAL HYPERTENSION
     Dosage: 800 MCG, BID
     Route: 048
     Dates: start: 20161013
  2. UPTRAVI [Suspect]
     Active Substance: SELEXIPAG
     Dosage: 1400 MCG, BID
     Route: 048
  3. UPTRAVI [Suspect]
     Active Substance: SELEXIPAG
     Dosage: 1200 MCG, BID
     Route: 048
  4. AMLODIPINE [Concomitant]
     Active Substance: AMLODIPINE BESYLATE
  5. UPTRAVI [Suspect]
     Active Substance: SELEXIPAG
     Dosage: 1600 MCG, BID
     Route: 048
  6. UPTRAVI [Suspect]
     Active Substance: SELEXIPAG
     Dosage: 1400 MCG, UNK
     Route: 048
  7. LETAIRIS [Concomitant]
     Active Substance: AMBRISENTAN

REACTIONS (9)
  - Arthralgia [Unknown]
  - Abdominal discomfort [Unknown]
  - Hospitalisation [Unknown]
  - Diarrhoea [Unknown]
  - Gait disturbance [Recovering/Resolving]
  - Myalgia [Recovering/Resolving]
  - Dizziness [Unknown]
  - Feeling abnormal [Unknown]
  - Incorrect dose administered [Unknown]
